FAERS Safety Report 11403380 (Version 1)
Quarter: 2015Q3

REPORT INFORMATION
  Report Type: Spontaneous
  Country: US (occurrence: US)
  Receive Date: 20150821
  Receipt Date: 20150821
  Transmission Date: 20151125
  Serious: No
  Sender: FDA-Public Use
  Company Number: US-TEVA-522260USA

PATIENT
  Sex: Female

DRUGS (1)
  1. MIRCETTE [Suspect]
     Active Substance: DESOGESTREL\ETHINYL ESTRADIOL
     Indication: PRODUCT USED FOR UNKNOWN INDICATION
     Route: 065

REACTIONS (9)
  - Paraesthesia [Unknown]
  - Diarrhoea [Unknown]
  - Nausea [Unknown]
  - Feeling hot [Unknown]
  - Palpitations [Unknown]
  - Dizziness [Unknown]
  - Tachycardia [Unknown]
  - Lip swelling [Unknown]
  - Muscle spasms [Unknown]
